FAERS Safety Report 10600995 (Version 1)
Quarter: 2014Q4

REPORT INFORMATION
  Report Type: Spontaneous
  Country: IN (occurrence: IN)
  Receive Date: 20141124
  Receipt Date: 20141124
  Transmission Date: 20150529
  Serious: Yes (Hospitalization)
  Sender: FDA-Public Use
  Company Number: IN-CIPLA LTD.-2014IN02068

PATIENT
  Age: 65 Year
  Sex: Male

DRUGS (2)
  1. ATENONLOL [Suspect]
     Active Substance: ATENOLOL
     Dosage: 50 MG, UNK
  2. AMLODIPINE [Suspect]
     Active Substance: AMLODIPINE BESYLATE
     Dosage: 50 MG, ACCIDENTAL INGESTION

REACTIONS (12)
  - Metabolic acidosis [Recovered/Resolved]
  - Left ventricular hypertrophy [Recovered/Resolved]
  - Accidental overdose [Unknown]
  - Oedema peripheral [None]
  - Respiratory acidosis [Recovered/Resolved]
  - Gastric mucosa erythema [None]
  - Haemodialysis [None]
  - Oliguria [Recovered/Resolved]
  - Hyperkalaemia [Recovered/Resolved]
  - Hypotension [Recovered/Resolved]
  - Unresponsive to stimuli [None]
  - Restlessness [None]
